FAERS Safety Report 5695638-8 (Version None)
Quarter: 2008Q2

REPORT INFORMATION
  Report Type: 
  Country: None (occurrence: None)
  Receive Date: 20080407
  Receipt Date: 20080327
  Transmission Date: 20081010
  Serious: Yes (Other)
  Sender: FDA-Public Use
  Company Number: SE-JNJFOC-20080306913

PATIENT
  Age: 6 Decade
  Sex: Female

DRUGS (4)
  1. REMICADE [Suspect]
     Dosage: 2 WEEKS AFTER 1ST INFUSION OF RESTART
     Route: 042
  2. REMICADE [Suspect]
     Route: 042
  3. REMICADE [Suspect]
     Indication: CROHN'S DISEASE
     Route: 042
  4. SOLU-CORTEF [Concomitant]
     Indication: PREMEDICATION

REACTIONS (5)
  - DYSPNOEA [None]
  - INFUSION RELATED REACTION [None]
  - INTESTINAL STENOSIS [None]
  - OCULAR HYPERAEMIA [None]
  - TACHYCARDIA [None]
